FAERS Safety Report 4967746-8 (Version None)
Quarter: 2006Q2

REPORT INFORMATION
  Report Type: 
  Country: None (occurrence: None)
  Receive Date: 20060410
  Receipt Date: 20060322
  Transmission Date: 20061013
  Serious: Yes (Other)
  Sender: FDA-Public Use
  Company Number: PHEH2006US03820

PATIENT
  Age: 71 Year
  Sex: Female
  Weight: 116.55 kg

DRUGS (24)
  1. FEMARA [Suspect]
     Indication: BREAST CANCER
     Dosage: 2.5 MG, QD
     Route: 048
     Dates: start: 20040225, end: 20060317
  2. ANSAID [Concomitant]
     Dosage: 100 MG, BID
     Route: 048
  3. ZYRTEC [Concomitant]
     Dosage: 10 MG, QD
     Route: 048
  4. LOPRESSOR [Concomitant]
     Dosage: 50 MG, QD
     Route: 048
  5. LISINOPRIL [Concomitant]
     Dosage: 10 MG, QD
     Route: 048
  6. LASIX [Concomitant]
     Dosage: 40 MG, BID
     Route: 048
  7. PAXIL [Concomitant]
     Dosage: 37.5 MG, QD
     Route: 048
  8. PULMICORT [Concomitant]
     Dosage: 0.5 MG, BID
  9. SPIRIVA [Concomitant]
     Dosage: UNK, QD
  10. NASAREL [Concomitant]
     Dosage: 29 UG, 2 SPRAYS EACH NOSTRIL
  11. GARLIC [Concomitant]
     Dosage: 1000 MG, QD
  12. POTASSIUM [Concomitant]
     Dosage: 99 MG, UNK
  13. MULTIVITAMIN [Concomitant]
     Dosage: UNK, QD
     Route: 048
  14. TRANXENE [Concomitant]
     Dosage: 10 MG, BID, PRN
     Route: 048
  15. FLEXERIL [Concomitant]
     Dosage: 10 MG, 1-3 TAB QD PRN
     Route: 048
  16. COMPAZINE [Concomitant]
     Dosage: 10 MG, PRN
     Route: 048
  17. ACETAMINOPHEN AND HYDROCODONE BITARTRATE [Concomitant]
     Dosage: 1-2 TABS Q6H PRN
     Route: 048
  18. LUNESTA [Concomitant]
     Indication: INSOMNIA
     Dosage: 1-2 TABS PRN
     Route: 048
  19. ALBUTEROL SULATE [Concomitant]
     Dosage: 0.083 %, PRN
  20. IPRATROPIUM BROMIDE [Concomitant]
     Dosage: 0.03 %, 1 SPRAY 0.5HR BEFORE MEALS
  21. ASPIRIN [Concomitant]
     Dosage: 81 MG, QD
     Route: 048
  22. ATARAX [Concomitant]
     Dosage: 1-2 TAB PRN
  23. CHLORPHENIRAMINE MALEATE [Concomitant]
     Dosage: 12 MG, PRN
     Route: 048
  24. RANITIDINE [Concomitant]
     Dosage: 300 MG, PRN
     Route: 048

REACTIONS (8)
  - ASPIRATION BIOPSY [None]
  - BRONCHITIS CHRONIC [None]
  - DISCOMFORT [None]
  - MALIGNANT BREAST LUMP REMOVAL [None]
  - MALIGNANT NEOPLASM PROGRESSION [None]
  - METASTASES TO LYMPH NODES [None]
  - OEDEMA PERIPHERAL [None]
  - STENT PLACEMENT [None]
